FAERS Safety Report 5262257-7 (Version None)
Quarter: 2007Q1

REPORT INFORMATION
  Report Type: 
  Country: None (occurrence: None)
  Receive Date: 20070308
  Receipt Date: 20070308
  Transmission Date: 20070707
  Serious: Yes (Hospitalization)
  Sender: FDA-Public Use
  Company Number: None

PATIENT
  Sex: Female
  Weight: 40.8237 kg

DRUGS (2)
  1. BEVACIZUMAB [Suspect]
     Dosage: SEE ORIGINAL MED WATCH
  2. CAPECITABINE [Suspect]
     Dosage: SEE ORIGINAL MED WATCH

REACTIONS (3)
  - DEHYDRATION [None]
  - HYPONATRAEMIA [None]
  - NAUSEA [None]
